FAERS Safety Report 8594076-8 (Version None)
Quarter: 2012Q3

REPORT INFORMATION
  Report Type: 
  Country: None (occurrence: None)
  Receive Date: 20120814
  Receipt Date: 20120702
  Transmission Date: 20120928
  Serious: No
  Sender: FDA-Public Use
  Company Number: US-009507513-1207USA000370

PATIENT

DRUGS (1)
  1. COSOPT [Suspect]
     Dosage: UNK
     Route: 047
     Dates: start: 20090101

REACTIONS (3)
  - OCULAR HYPERAEMIA [None]
  - EYE PRURITUS [None]
  - INTRAOCULAR PRESSURE INCREASED [None]
